FAERS Safety Report 8438432-7 (Version None)
Quarter: 2012Q2

REPORT INFORMATION
  Report Type: 
  Country: None (occurrence: None)
  Receive Date: 20120614
  Receipt Date: 20120606
  Transmission Date: 20120825
  Serious: Yes (Hospitalization)
  Sender: FDA-Public Use
  Company Number: US-UCBSA-022082

PATIENT
  Age: 49 Year
  Sex: Female
  Weight: 65 kg

DRUGS (16)
  1. LOVENOX [Concomitant]
  2. TOPIRAMATE [Concomitant]
  3. POTASSIUM ACETATE [Concomitant]
  4. LOMOTIL [Concomitant]
     Dosage: PRN (AS NEEDED)
  5. PLAQUENIL [Concomitant]
  6. ATIVAN [Concomitant]
     Dosage: 0.5 MG
     Route: 042
  7. PHENERGAN [Concomitant]
     Dosage: 12.5 MG
     Route: 042
  8. SODIUM CHLORIDE [Concomitant]
     Dosage: 2000 ML
     Route: 042
  9. CIMZIA [Suspect]
     Indication: CROHN'S DISEASE
     Route: 058
     Dates: start: 20101005
  10. PHENERGAN [Concomitant]
  11. BENTYL [Concomitant]
     Dosage: Q 4-6 HRS
  12. PROTONIX [Concomitant]
  13. TRAZODONE HCL [Concomitant]
     Dosage: QHS ( EVERY NIGHT AT BED TIME)
  14. ROPINIROLE [Concomitant]
  15. EFFEXOR [Concomitant]
  16. DILAUDID [Concomitant]
     Dosage: 0.5-1 MG
     Route: 042

REACTIONS (2)
  - GASTROINTESTINAL HAEMORRHAGE [None]
  - FEMUR FRACTURE [None]
